FAERS Safety Report 6312863-3 (Version None)
Quarter: 2009Q3

REPORT INFORMATION
  Report Type: 
  Country: None (occurrence: None)
  Receive Date: 20090818
  Receipt Date: 20090811
  Transmission Date: 20100115
  Serious: Yes (Hospitalization, Other)
  Sender: FDA-Public Use
  Company Number: US-JNJFOC-20060906204

PATIENT
  Sex: Female
  Weight: 81.6 kg

DRUGS (8)
  1. RISPERDAL [Suspect]
     Indication: INSOMNIA
  2. SEROQUEL [Suspect]
     Indication: INSOMNIA
     Dosage: 100-300 MG
     Route: 065
  3. LOPRESSOR [Concomitant]
  4. POTASSIUM CHLORIDE [Concomitant]
  5. RHINOCORT [Concomitant]
  6. LIPITOR [Concomitant]
  7. PRILOSEC [Concomitant]
  8. VISTARIL [Concomitant]

REACTIONS (2)
  - DIABETES MELLITUS [None]
  - DIABETIC KETOACIDOSIS [None]
